APPROVED DRUG PRODUCT: SULFASALAZINE
Active Ingredient: SULFASALAZINE
Strength: 500MG
Dosage Form/Route: TABLET;ORAL
Application: A040349 | Product #001 | TE Code: AB
Applicant: NUVO PHAMACEUTICALS INC
Approved: Jan 11, 2002 | RLD: No | RS: No | Type: RX